FAERS Safety Report 9878056 (Version 2)
Quarter: 2014Q1

REPORT INFORMATION
  Report Type: Spontaneous
  Country: US (occurrence: US)
  Receive Date: 20140206
  Receipt Date: 20140219
  Transmission Date: 20141002
  Serious: Yes (Death, Hospitalization, Other)
  Sender: FDA-Public Use
  Company Number: US-BAXTER-2014BAX004486

PATIENT
  Sex: 0

DRUGS (1)
  1. DIANEAL LOW CALCIUM [Suspect]
     Indication: PERITONEAL DIALYSIS
     Route: 033
     Dates: end: 20140125

REACTIONS (5)
  - Renal failure chronic [Fatal]
  - Therapy cessation [Fatal]
  - Goodpasture^s syndrome [Unknown]
  - General physical health deterioration [Unknown]
  - Hypophagia [Unknown]
